FAERS Safety Report 25934558 (Version 1)
Quarter: 2025Q4

REPORT INFORMATION
  Report Type: Report from Study
  Country: EU (occurrence: EU)
  Receive Date: 20251017
  Receipt Date: 20251017
  Transmission Date: 20260118
  Serious: Yes (Other)
  Sender: ABBVIE
  Company Number: EU-ABBVIE-6506892

PATIENT
  Age: 50 Year
  Sex: Female

DRUGS (1)
  1. VYALEV [Suspect]
     Active Substance: FOSCARBIDOPA\FOSLEVODOPA
     Indication: Product used for unknown indication
     Dosage: - FLOW RATE 1 (ML/H): 0.22ML/H ; DURATION/DURATION (H): HIGH?- FLOW RATE 2 (ML/H): 0.20ML/H ; DUR...
     Route: 058
     Dates: start: 20250711

REACTIONS (3)
  - Nodule [Not Recovered/Not Resolved]
  - Localised infection [Not Recovered/Not Resolved]
  - Post procedural erythema [Not Recovered/Not Resolved]

NARRATIVE: CASE EVENT DATE: 20250101
